FAERS Safety Report 6218972-1 (Version None)
Quarter: 2009Q2

REPORT INFORMATION
  Report Type: 
  Country: None (occurrence: None)
  Receive Date: 20090608
  Receipt Date: 20090528
  Transmission Date: 20091009
  Serious: Yes (Other)
  Sender: FDA-Public Use
  Company Number: PHHY2009BR21028

PATIENT
  Sex: Male
  Weight: 60 kg

DRUGS (3)
  1. RITALIN [Suspect]
     Indication: DISTURBANCE IN ATTENTION
     Dosage: 1 TABLET DAILY
     Route: 048
  2. RITALIN [Suspect]
     Dosage: 2 TABLETS DAILY
  3. PONDERAL [Concomitant]
     Indication: DEPRESSION
     Dosage: 1 DF, QHS
     Route: 048

REACTIONS (4)
  - AGITATION [None]
  - ARRHYTHMIA [None]
  - HEART RATE INCREASED [None]
  - PALPITATIONS [None]
